FAERS Safety Report 23871868 (Version 1)
Quarter: 2024Q2

REPORT INFORMATION
  Report Type: Other
  Country: US (occurrence: None)
  Receive Date: 20240520
  Receipt Date: 20240520
  Transmission Date: 20240716
  Serious: No
  Sender: FDA-Public Use
  Company Number: US-ROCHE-3412765

PATIENT
  Age: 62 Year
  Sex: Female
  Weight: 93.07 kg

DRUGS (10)
  1. OCREVUS [Suspect]
     Active Substance: OCRELIZUMAB
     Indication: Primary progressive multiple sclerosis
     Dosage: DATE OF TREATMENT IDENTIFY: 21-AUG-2023, 20-FEB-2023, 19-AUG-2022, 02-SEP-2022, 19/FEB/2024
     Route: 042
     Dates: start: 20220819
  2. OCREVUS [Suspect]
     Active Substance: OCRELIZUMAB
     Indication: Multiple sclerosis
  3. BACLOFEN [Concomitant]
     Active Substance: BACLOFEN
     Route: 048
     Dates: start: 2022
  4. PRAMIPEXOLE [Concomitant]
     Active Substance: PRAMIPEXOLE\PRAMIPEXOLE DIHYDROCHLORIDE
     Route: 048
     Dates: start: 2022
  5. VENLAFAXINE HYDROCHLORIDE [Concomitant]
     Active Substance: VENLAFAXINE HYDROCHLORIDE
     Route: 048
     Dates: start: 2007
  6. FLUTICASONE PROPIONATE [Concomitant]
     Active Substance: FLUTICASONE PROPIONATE
  7. OXYBUTYNIN [Concomitant]
     Active Substance: OXYBUTYNIN\OXYBUTYNIN CHLORIDE
  8. VITAMIN D2 [Concomitant]
     Active Substance: ERGOCALCIFEROL
  9. AZELASTINE HYDROCHLORIDE [Concomitant]
     Active Substance: AZELASTINE HYDROCHLORIDE
  10. MODERNA COVID-19 VACCINE [Concomitant]
     Active Substance: ELASOMERAN
     Dosage: DOSES ON 18-MAR-2021, 15-APR-2021, 24-JAN-2022, 10-AUG-2022,?28-OCT-2022
     Dates: start: 20210318

REACTIONS (14)
  - Agitation [Recovered/Resolved]
  - Diarrhoea [Recovered/Resolved]
  - Musculoskeletal stiffness [Recovered/Resolved]
  - Headache [Recovered/Resolved]
  - Weight increased [Not Recovered/Not Resolved]
  - Fall [Unknown]
  - Limb discomfort [Not Recovered/Not Resolved]
  - Swelling [Recovered/Resolved]
  - COVID-19 [Recovered/Resolved]
  - Conjunctivitis [Recovered/Resolved]
  - Eye pain [Not Recovered/Not Resolved]
  - Hypersomnia [Recovered/Resolved]
  - Joint stiffness [Not Recovered/Not Resolved]
  - Pain in extremity [Not Recovered/Not Resolved]

NARRATIVE: CASE EVENT DATE: 20220819
